FAERS Safety Report 5472582-2 (Version None)
Quarter: 2007Q4

REPORT INFORMATION
  Report Type: 
  Country: None (occurrence: None)
  Receive Date: 20071001
  Receipt Date: 20060714
  Transmission Date: 20080405
  Serious: No
  Sender: FDA-Public Use
  Company Number: US-ASTRAZENECA-2006UW14515

PATIENT
  Age: 86 Year
  Sex: Female
  Weight: 61.2 kg

DRUGS (5)
  1. ARIMIDEX [Suspect]
     Indication: BREAST CANCER FEMALE
     Route: 048
  2. DELACOR [Concomitant]
  3. LIPITOR [Concomitant]
  4. OMEPRAZOLE [Concomitant]
  5. FOSAMAX [Concomitant]

REACTIONS (2)
  - EYE DISORDER [None]
  - LACRIMAL DISORDER [None]
